FAERS Safety Report 10235689 (Version 2)
Quarter: 2014Q2

REPORT INFORMATION
  Report Type: Spontaneous
  Country: HK (occurrence: HK)
  Receive Date: 20140613
  Receipt Date: 20140617
  Transmission Date: 20141212
  Serious: Yes (Death)
  Sender: FDA-Public Use
  Company Number: HK-B.I. PHARMACEUTICALS,INC./RIDGEFIELD-2014-BI-25859HK

PATIENT
  Sex: 0

DRUGS (1)
  1. GIOTRIF [Suspect]
     Indication: NON-SMALL CELL LUNG CANCER
     Route: 065

REACTIONS (1)
  - Malignant neoplasm progression [Fatal]
